FAERS Safety Report 4412777-X (Version None)
Quarter: 2004Q3

REPORT INFORMATION
  Report Type: 
  Country: None (occurrence: None)
  Receive Date: 20040727
  Receipt Date: 20040712
  Transmission Date: 20050211
  Serious: Yes (Other)
  Sender: FDA-Public Use
  Company Number: 2004223283US

PATIENT
  Age: 53 Year
  Sex: Female

DRUGS (5)
  1. PROVERA [Suspect]
     Indication: MENOPAUSAL SYMPTOMS
     Dates: start: 19970101, end: 20030501
  2. PREMARIN [Suspect]
     Indication: MENOPAUSAL SYMPTOMS
     Dates: start: 19970101, end: 20030501
  3. ESTRACE [Suspect]
     Indication: MENOPAUSAL SYMPTOMS
     Dates: start: 19970101, end: 20030501
  4. ESTRADIOL [Suspect]
     Indication: MENOPAUSAL SYMPTOMS
     Dates: start: 19970101, end: 20030501
  5. ESTRATEST [Suspect]
     Indication: MENOPAUSAL SYMPTOMS
     Dates: start: 19970101, end: 20030501

REACTIONS (1)
  - BREAST CANCER IN SITU [None]
